FAERS Safety Report 9752658 (Version 1)
Quarter: 2013Q4

REPORT INFORMATION
  Report Type: Spontaneous
  Country: US (occurrence: US)
  Receive Date: 20131213
  Receipt Date: 20131213
  Transmission Date: 20140711
  Serious: Yes (Hospitalization, Other)
  Sender: FDA-Public Use
  Company Number: US-SA-2013SA129356

PATIENT
  Age: 80 Year
  Sex: Female
  Weight: 39.91 kg

DRUGS (2)
  1. IRBESARTAN + HCTZ [Suspect]
     Indication: BLOOD PRESSURE
     Dosage: TAKEN FROM: 14 YEARS.?DOSE: 150/12.5 MG
     Route: 048
  2. PLAVIX [Concomitant]

REACTIONS (10)
  - Fall [Unknown]
  - Head injury [Unknown]
  - Cervical vertebral fracture [Unknown]
  - Feeling abnormal [Unknown]
  - Cardiac disorder [Unknown]
  - Loss of consciousness [Unknown]
  - Autonomic neuropathy [Unknown]
  - Heart rate irregular [Unknown]
  - Blood pressure increased [Unknown]
  - Wrong technique in drug usage process [Unknown]
